FAERS Safety Report 6959395-7 (Version None)
Quarter: 2010Q3

REPORT INFORMATION
  Report Type: 
  Country: None (occurrence: None)
  Receive Date: 20100831
  Receipt Date: 20100823
  Transmission Date: 20110219
  Serious: No
  Sender: FDA-Public Use
  Company Number: JP-MERCK-1007USA01781

PATIENT
  Age: 29 Year
  Sex: Male

DRUGS (2)
  1. PROPECIA [Suspect]
     Indication: ANDROGENETIC ALOPECIA
     Route: 048
     Dates: start: 20091219, end: 20091228
  2. PROPECIA [Suspect]
     Route: 048

REACTIONS (1)
  - CHEST DISCOMFORT [None]
